FAERS Safety Report 13016963 (Version 1)
Quarter: 2016Q4

REPORT INFORMATION
  Report Type: Spontaneous
  Country: US (occurrence: US)
  Receive Date: 20161209
  Receipt Date: 20161209
  Transmission Date: 20170207
  Serious: Yes (Disabling)
  Sender: FDA-Public Use
  Company Number: None

PATIENT
  Age: 36 Year
  Sex: Male
  Weight: 83.25 kg

DRUGS (12)
  1. ALTERIL MAXIMUM STRENGTH 2 TABLETS BIOTAB NUTRACEUTICALS, [Concomitant]
     Active Substance: MELATONIN
  2. IODINE. [Concomitant]
     Active Substance: IODINE
  3. COQ10 [Concomitant]
     Active Substance: UBIDECARENONE
  4. FLEXERIL [Concomitant]
     Active Substance: CYCLOBENZAPRINE HYDROCHLORIDE
  5. VITAMIN D [Concomitant]
     Active Substance: CHOLECALCIFEROL
  6. AVELOX [Suspect]
     Active Substance: MOXIFLOXACIN HYDROCHLORIDE
     Dosage: ?          QUANTITY:1 TABLET(S);?
     Route: 048
  7. SINGULAIR [Concomitant]
     Active Substance: MONTELUKAST SODIUM
  8. CIPROFLOXIN [Suspect]
     Active Substance: CIPROFLOXACIN
     Indication: SINUSITIS
     Dosage: ?          QUANTITY:1 TABLET(S);?
     Route: 048
  9. MAGNESIUM [Concomitant]
     Active Substance: MAGNESIUM
  10. TART CHERRY EXTRACT [Concomitant]
  11. CLARITIN [Concomitant]
     Active Substance: LORATADINE
  12. MULTIVITAMIN [Concomitant]
     Active Substance: VITAMINS

REACTIONS (10)
  - Tinnitus [None]
  - Amnesia [None]
  - Memory impairment [None]
  - Anhedonia [None]
  - Headache [None]
  - Pain [None]
  - Impaired work ability [None]
  - Fibromyalgia [None]
  - Neuropathy peripheral [None]
  - Educational problem [None]

NARRATIVE: CASE EVENT DATE: 20050801
